FAERS Safety Report 5370211-X (Version None)
Quarter: 2007Q2

REPORT INFORMATION
  Report Type: 
  Country: None (occurrence: None)
  Receive Date: 20070613
  Receipt Date: 20070507
  Transmission Date: 20071010
  Serious: No
  Sender: FDA-Public Use
  Company Number: IND-AE-07-SAN-024

PATIENT
  Age: 63 Year
  Sex: Female
  Weight: 69.4003 kg

DRUGS (4)
  1. SANCTURA [Suspect]
     Indication: URINARY INCONTINENCE
     Dosage: 20MG - BID - ORAL
     Route: 048
     Dates: start: 20070401, end: 20070504
  2. ENTEX CAP [Concomitant]
  3. VALIUM [Concomitant]
  4. PREMARIN [Concomitant]

REACTIONS (4)
  - BLOOD PRESSURE INCREASED [None]
  - FLUID RETENTION [None]
  - PALPITATIONS [None]
  - RENAL PAIN [None]
